FAERS Safety Report 6024933-8 (Version None)
Quarter: 2008Q4

REPORT INFORMATION
  Report Type: 
  Country: None (occurrence: None)
  Receive Date: 20081231
  Receipt Date: 20081211
  Transmission Date: 20090506
  Serious: Yes (Other)
  Sender: FDA-Public Use
  Company Number: JP-PFIZER INC-ENC200800204

PATIENT

DRUGS (2)
  1. ARGATROBAN [Suspect]
     Route: 042
  2. ARGATROBAN [Suspect]
     Dosage: 50 MG/HR
     Route: 042

REACTIONS (4)
  - COAGULATION TIME PROLONGED [None]
  - HAEMORRHAGE [None]
  - OFF LABEL USE [None]
  - OVERDOSE [None]
